FAERS Safety Report 5012520-X (Version None)
Quarter: 2006Q2

REPORT INFORMATION
  Report Type: 
  Country: None (occurrence: None)
  Receive Date: 20060411
  Receipt Date: 20060213
  Transmission Date: 20061013
  Serious: No
  Sender: FDA-Public Use
  Company Number: 2006S1000036

PATIENT

DRUGS (2)
  1. CUBICIN [Suspect]
     Dates: end: 20060101
  2. VANCOMYCIN [Suspect]
     Dates: start: 20060101

REACTIONS (1)
  - RASH [None]
